FAERS Safety Report 15891006 (Version 1)
Quarter: 2019Q1

REPORT INFORMATION
  Report Type: Spontaneous
  Country: US (occurrence: US)
  Receive Date: 20190130
  Receipt Date: 20190130
  Transmission Date: 20190417
  Serious: Yes (Hospitalization)
  Sender: FDA-Public Use
  Company Number: US-MYLANLABS-2019M1008043

PATIENT
  Age: 66 Year
  Sex: Male

DRUGS (3)
  1. METHOTREXATE. [Suspect]
     Active Substance: METHOTREXATE
     Indication: SARCOIDOSIS
     Dosage: 15 MILLIGRAM, QW
     Route: 065
  2. PREDNISONE. [Suspect]
     Active Substance: PREDNISONE
     Dosage: 40 MILLIGRAM, QD
     Route: 065
  3. PREDNISONE. [Suspect]
     Active Substance: PREDNISONE
     Indication: SARCOIDOSIS
     Dosage: DOSE INCREASED TO 40MG DAILY
     Route: 065

REACTIONS (7)
  - Stenotrophomonas infection [Recovering/Resolving]
  - Enterococcal infection [Recovering/Resolving]
  - Herpes zoster [Recovering/Resolving]
  - Cutaneous vasculitis [Recovering/Resolving]
  - Pseudomonas infection [Recovering/Resolving]
  - Skin ulcer [Recovering/Resolving]
  - Escherichia infection [Recovering/Resolving]
